FAERS Safety Report 13269602 (Version 3)
Quarter: 2021Q2

REPORT INFORMATION
  Report Type: Spontaneous
  Country: FR (occurrence: FR)
  Receive Date: 20170224
  Receipt Date: 20210428
  Transmission Date: 20210716
  Serious: Yes (Hospitalization, Other)
  Sender: FDA-Public Use
  Company Number: PHHY2017FR025553

PATIENT
  Age: 36 Year
  Sex: Female
  Weight: 54 kg

DRUGS (14)
  1. IMETH [Concomitant]
     Active Substance: METHOTREXATE SODIUM
     Indication: APHTHOUS ULCER
     Dosage: 10 MG, 0.1429 DFS PER WEEK
     Route: 048
  2. COSENTYX [Suspect]
     Active Substance: SECUKINUMAB
     Dosage: UNK
     Route: 058
     Dates: start: 20161007
  3. COSENTYX [Suspect]
     Active Substance: SECUKINUMAB
     Dosage: UNK
     Route: 058
     Dates: start: 20161121
  4. SPECIAFOLDINE [Concomitant]
     Active Substance: FOLIC ACID
     Indication: APHTHOUS ULCER
     Dosage: 2 DF, QW ON WEDNESDAY
     Route: 048
  5. CHRONO INDOCID [Concomitant]
     Active Substance: INDOMETHACIN
     Indication: ANKYLOSING SPONDYLITIS
     Dosage: 75 MG, BID
     Route: 048
  6. DAFALGAN CODEINE [Concomitant]
     Active Substance: ACETAMINOPHEN\CODEINE PHOSPHATE
     Indication: PRODUCT USED FOR UNKNOWN INDICATION
     Dosage: 4 DF, QD
     Route: 048
  7. LEXOMIL [Concomitant]
     Active Substance: BROMAZEPAM
     Dosage: 6 MG, QD
     Route: 065
  8. COSENTYX [Suspect]
     Active Substance: SECUKINUMAB
     Dosage: UNK
     Route: 058
     Dates: start: 20161014
  9. COSENTYX [Suspect]
     Active Substance: SECUKINUMAB
     Indication: ANKYLOSING SPONDYLITIS
     Dosage: 150 MG, 1 DF PER CYCLE
     Route: 058
     Dates: start: 20160930
  10. COSENTYX [Suspect]
     Active Substance: SECUKINUMAB
     Dosage: UNK
     Route: 058
     Dates: end: 20161221
  11. LEXOMIL [Concomitant]
     Active Substance: BROMAZEPAM
     Indication: APHTHOUS ULCER
     Dosage: 0.25 MG, 4 DFS PER DAY
     Route: 048
  12. ILOMEDIN [Concomitant]
     Active Substance: ILOPROST TROMETHAMINE
     Indication: RAYNAUD^S PHENOMENON
     Dosage: UNK
     Route: 065
     Dates: end: 201612
  13. COSENTYX [Suspect]
     Active Substance: SECUKINUMAB
     Dosage: UNK
     Route: 058
     Dates: start: 20161020
  14. TOPALGIC [Concomitant]
     Indication: APHTHOUS ULCER
     Dosage: 200 MG, QD
     Route: 048

REACTIONS (13)
  - Oral mucosa erosion [Recovered/Resolved]
  - Dysphagia [Unknown]
  - Aphthous ulcer [Recovered/Resolved]
  - Weight decreased [Unknown]
  - Colitis [Not Recovered/Not Resolved]
  - Enteritis [Not Recovered/Not Resolved]
  - Abdominal pain [Not Recovered/Not Resolved]
  - Enterocolitis [Unknown]
  - Gastrointestinal disorder [Unknown]
  - Crohn^s disease [Unknown]
  - Feeding disorder [Unknown]
  - Vomiting [Unknown]
  - C-reactive protein increased [Unknown]

NARRATIVE: CASE EVENT DATE: 201701
